FAERS Safety Report 4673963-7 (Version None)
Quarter: 2005Q2

REPORT INFORMATION
  Report Type: 
  Country: None (occurrence: None)
  Receive Date: 20050524
  Receipt Date: 20050511
  Transmission Date: 20051028
  Serious: Yes (Hospitalization)
  Sender: FDA-Public Use
  Company Number: EWC050543954

PATIENT
  Age: 62 Year
  Sex: Female

DRUGS (4)
  1. FORTEO [Suspect]
     Indication: OSTEOPOROSIS
     Dosage: 20 UG/ONCE DAY
     Dates: start: 20050428, end: 20050501
  2. PIROXICAMUM [Concomitant]
  3. TRAMADOL HCL [Concomitant]
  4. FORTRAL (PENTAZOCINE) [Concomitant]

REACTIONS (3)
  - DIARRHOEA [None]
  - NAUSEA [None]
  - PYREXIA [None]
